FAERS Safety Report 20303448 (Version 2)
Quarter: 2022Q2

REPORT INFORMATION
  Report Type: Report from Study
  Country: FR (occurrence: FR)
  Receive Date: 20220106
  Receipt Date: 20220419
  Transmission Date: 20220721
  Serious: Yes (Death)
  Sender: FDA-Public Use
  Company Number: FR-PFIZER INC-202101884643

PATIENT

DRUGS (9)
  1. DOCETAXEL [Suspect]
     Active Substance: DOCETAXEL
     Indication: Head and neck cancer
     Dosage: AT DAY 1 EVERY 21 DAYS
  2. FLUOROURACIL [Suspect]
     Active Substance: FLUOROURACIL
     Indication: Head and neck cancer
     Dosage: ON A CONTINUOUS DRIP FROM DAY 1 TO DAY 5 EVERY 21 DAYS
  3. CISPLATIN [Suspect]
     Active Substance: CISPLATIN
     Indication: Head and neck cancer
     Dosage: AT DAY 1 EVERY 21 DAYS
  4. SODIUM CHLORIDE [Concomitant]
     Active Substance: SODIUM CHLORIDE
     Indication: Fluid replacement
     Dosage: 2 L/24 H
  5. DEXTROSE\POTASSIUM CHLORIDE\SODIUM CHLORIDE [Concomitant]
     Active Substance: DEXTROSE\POTASSIUM CHLORIDE\SODIUM CHLORIDE
     Indication: Fluid replacement
     Dosage: 1 L/24 H
  6. APREPITANT [Concomitant]
     Active Substance: APREPITANT
     Indication: Prophylaxis of nausea and vomiting
     Dosage: UNK
  7. ONDANSETRON [Concomitant]
     Active Substance: ONDANSETRON
     Indication: Prophylaxis of nausea and vomiting
     Dosage: UNK
  8. GRANULOCYTE COLONY-STIMULATING FACTOR NOS [Concomitant]
     Active Substance: GRANULOCYTE COLONY-STIMULATING FACTOR NOS
  9. METHYLPREDNISOLONE [Concomitant]
     Active Substance: METHYLPREDNISOLONE
     Dosage: 100 MG ON THE DAY BEFORE, THE SAME DAY, AND THE DAY AFTER THE DOSE OF DOCETAXEL

REACTIONS (1)
  - Death [Fatal]
